FAERS Safety Report 6578063-7 (Version None)
Quarter: 2010Q1

REPORT INFORMATION
  Report Type: 
  Country: None (occurrence: None)
  Receive Date: 20100211
  Receipt Date: 20100129
  Transmission Date: 20100710
  Serious: Yes (Other)
  Sender: FDA-Public Use
  Company Number: US-ELI_LILLY_AND_COMPANY-US201001000168

PATIENT
  Sex: Female
  Weight: 102.4 kg

DRUGS (12)
  1. BYETTA [Suspect]
     Indication: TYPE 2 DIABETES MELLITUS
     Dosage: 5 UG, 2/D
     Route: 058
     Dates: start: 20070101, end: 20070101
  2. BYETTA [Suspect]
     Dosage: 10 UG, 2/D
     Route: 058
     Dates: start: 20070101, end: 20090401
  3. BYETTA [Suspect]
     Dosage: 5 UG, 2/D
     Route: 058
     Dates: start: 20090801
  4. LEXAPRO [Concomitant]
     Dosage: 20 MG, DAILY (1/D)
  5. AVANDAMET [Concomitant]
     Indication: TYPE 2 DIABETES MELLITUS
     Dosage: 1000 MG, 2/D
     Route: 048
  6. LISINOPRIL [Concomitant]
     Indication: BLOOD PRESSURE
     Dosage: UNK, DAILY (1/D)
     Route: 047
  7. AVONEX [Concomitant]
     Indication: MULTIPLE SCLEROSIS
     Dosage: 30 MG, WEEKLY (1/W)
     Route: 051
  8. TIZANIDINE HCL [Concomitant]
     Indication: MULTIPLE SCLEROSIS
     Dosage: 4 MG, DAILY (1/D)
     Route: 048
  9. ASPIRIN [Concomitant]
     Indication: BLOOD PRESSURE
     Dosage: 81 MG, DAILY (1/D)
     Route: 048
  10. LOVAZA [Concomitant]
     Dosage: UNK, EACH EVENING
  11. MULTI-VITAMIN [Concomitant]
     Dosage: UNK, UNKNOWN
  12. PAPAYA ENZYME [Concomitant]
     Indication: FLATULENCE
     Dosage: UNK, UNKNOWN

REACTIONS (4)
  - DRUG INEFFECTIVE [None]
  - GLYCOSYLATED HAEMOGLOBIN INCREASED [None]
  - INCORRECT DOSE ADMINISTERED [None]
  - OPEN ANGLE GLAUCOMA [None]
